FAERS Safety Report 6927697-6 (Version None)
Quarter: 2010Q3

REPORT INFORMATION
  Report Type: 
  Country: None (occurrence: None)
  Receive Date: 20100817
  Receipt Date: 20100802
  Transmission Date: 20110219
  Serious: Yes (Other)
  Sender: FDA-Public Use
  Company Number: PHHY2010US23081

PATIENT
  Sex: Female

DRUGS (5)
  1. RECLAST [Suspect]
     Indication: GASTROOESOPHAGEAL REFLUX DISEASE
     Dosage: 5 MG, PER YEAR
     Route: 042
     Dates: start: 20090921
  2. RECLAST [Suspect]
     Indication: OSTEOPENIA
  3. CRESTOR [Concomitant]
     Dosage: UNK
     Route: 048
     Dates: start: 20091125
  4. ZETIA [Concomitant]
     Dosage: UNK
     Route: 048
     Dates: start: 20091120
  5. ZOLOFT [Concomitant]
     Dosage: UNK
     Route: 048
     Dates: start: 20000510

REACTIONS (2)
  - HEADACHE [None]
  - THROAT IRRITATION [None]
